FAERS Safety Report 14134013 (Version 1)
Quarter: 2017Q4

REPORT INFORMATION
  Report Type: Spontaneous
  Country: JP (occurrence: JP)
  Receive Date: 20171027
  Receipt Date: 20171027
  Transmission Date: 20180321
  Serious: Yes (Death, Other)
  Sender: FDA-Public Use
  Company Number: JP-ASTELLAS-2017JP020039AA

PATIENT
  Age: 8 Decade
  Sex: Female

DRUGS (1)
  1. PROGRAF [Suspect]
     Active Substance: TACROLIMUS\TACROLIMUS ANHYDROUS
     Indication: STILL^S DISEASE
     Dosage: 3 MG, TWICE DAILY, IN THE MORNING AND EVENING
     Route: 048
     Dates: start: 20171017

REACTIONS (2)
  - Off label use [Unknown]
  - Renal impairment [Fatal]

NARRATIVE: CASE EVENT DATE: 20171017
